FAERS Safety Report 5623309-2 (Version None)
Quarter: 2008Q1

REPORT INFORMATION
  Report Type: 
  Country: None (occurrence: None)
  Receive Date: 20080212
  Receipt Date: 20080131
  Transmission Date: 20080703
  Serious: Yes (Hospitalization)
  Sender: FDA-Public Use
  Company Number: IT-JNJFOC-20080202385

PATIENT
  Sex: Female

DRUGS (2)
  1. CONTRAMAL SR [Suspect]
     Indication: OSTEOARTHRITIS
     Route: 048
     Dates: start: 20080113, end: 20080115
  2. ALL OTHER THERAPEUTIC PRODUCTS [Concomitant]
     Route: 065

REACTIONS (1)
  - COMA [None]
